FAERS Safety Report 20820217 (Version 11)
Quarter: 2024Q3

REPORT INFORMATION
  Report Type: Spontaneous
  Country: US (occurrence: US)
  Receive Date: 20220512
  Receipt Date: 20240920
  Transmission Date: 20241016
  Serious: Yes (Other)
  Sender: PFIZER
  Company Number: US-PFIZER INC-202200278907

PATIENT
  Age: 61 Year
  Sex: Female
  Weight: 77.551 kg

DRUGS (4)
  1. XELJANZ XR [Suspect]
     Active Substance: TOFACITINIB CITRATE
     Indication: Arthritis
     Dosage: ONCE A DAY: 24 HOUR
     Route: 048
     Dates: start: 20211221
  2. XELJANZ XR [Suspect]
     Active Substance: TOFACITINIB CITRATE
     Indication: Rheumatoid arthritis
     Dosage: 11 MG
  3. ALENDRONATE [Concomitant]
     Active Substance: ALENDRONATE SODIUM
     Indication: Osteoporosis
     Dosage: 70 MG
  4. HERBALS\TURMERIC [Concomitant]
     Active Substance: HERBALS\TURMERIC
     Dosage: UNK

REACTIONS (6)
  - Pain [Unknown]
  - Alopecia [Unknown]
  - Daydreaming [Unknown]
  - Dyspnoea [Recovered/Resolved]
  - Back pain [Recovering/Resolving]
  - Hypoaesthesia [Recovering/Resolving]
